FAERS Safety Report 12202681 (Version 3)
Quarter: 2016Q2

REPORT INFORMATION
  Report Type: Report from Study
  Country: BR (occurrence: BR)
  Receive Date: 20160323
  Receipt Date: 20160623
  Transmission Date: 20160815
  Serious: Yes (Hospitalization)
  Sender: FDA-Public Use
  Company Number: BR-ABBVIE-16K-020-1587844-00

PATIENT
  Sex: Female
  Weight: 68 kg

DRUGS (19)
  1. LYRICA [Concomitant]
     Active Substance: PREGABALIN
     Indication: PAIN
     Route: 048
     Dates: start: 2011
  2. MUSCULARE [Concomitant]
     Indication: MUSCLE RELAXANT THERAPY
  3. FOLIC ACID. [Concomitant]
     Active Substance: FOLIC ACID
     Indication: PRODUCT USED FOR UNKNOWN INDICATION
     Route: 048
     Dates: start: 2011
  4. IBUPROFEN. [Concomitant]
     Active Substance: IBUPROFEN
     Indication: PAIN
     Route: 048
     Dates: start: 2008
  5. CALCIUM [Concomitant]
     Active Substance: CALCIUM
     Indication: PRODUCT USED FOR UNKNOWN INDICATION
     Route: 048
     Dates: start: 201603
  6. METHOTREXATE [Concomitant]
     Active Substance: METHOTREXATE
     Indication: PRODUCT USED FOR UNKNOWN INDICATION
     Route: 048
     Dates: start: 2011
  7. PRISTIQ EXTENDED-RELEASE [Concomitant]
     Active Substance: DESVENLAFAXINE SUCCINATE
     Indication: DEPRESSION
  8. LYRICA [Concomitant]
     Active Substance: PREGABALIN
     Route: 048
  9. PARATRAM [Concomitant]
     Active Substance: ACETAMINOPHEN\TRAMADOL HYDROCHLORIDE
     Indication: PAIN
     Route: 048
     Dates: start: 2011
  10. MUSCULARE [Concomitant]
     Indication: PAIN
     Route: 048
     Dates: start: 2011
  11. ARTROSIL [Concomitant]
     Active Substance: KETOPROFEN LYSINE
     Indication: PAIN
     Route: 048
     Dates: start: 2011
  12. FIXA CAL [Concomitant]
     Active Substance: MINERALS\VITAMINS
     Indication: BONE DISORDER
     Route: 048
     Dates: start: 2010
  13. HUMIRA [Suspect]
     Active Substance: ADALIMUMAB
     Indication: RHEUMATOID ARTHRITIS
     Route: 058
     Dates: start: 20130220
  14. FERROUS SULFATE. [Concomitant]
     Active Substance: FERROUS SULFATE
     Indication: BONE DISORDER
     Route: 048
     Dates: start: 201508
  15. ARTROSIL [Concomitant]
     Active Substance: KETOPROFEN LYSINE
     Indication: OSTEOARTHRITIS
  16. PRISTIQ EXTENDED-RELEASE [Concomitant]
     Active Substance: DESVENLAFAXINE SUCCINATE
     Indication: PAIN
     Route: 048
     Dates: start: 2011
  17. IRON [Concomitant]
     Active Substance: IRON
     Indication: ANAEMIA PROPHYLAXIS
     Route: 048
     Dates: start: 2014
  18. OMEGA 3 [Concomitant]
     Active Substance: OMEGA-3 FATTY ACIDS
     Indication: PRODUCT USED FOR UNKNOWN INDICATION
     Route: 048
     Dates: start: 201512
  19. LYRICA [Concomitant]
     Active Substance: PREGABALIN
     Route: 048

REACTIONS (5)
  - Immunodeficiency [Recovered/Resolved]
  - Arthralgia [Recovered/Resolved]
  - Gastric ulcer [Recovered/Resolved]
  - Yellow skin [Recovered/Resolved]
  - Anaemia [Recovered/Resolved]

NARRATIVE: CASE EVENT DATE: 2015
